FAERS Safety Report 7347397-0 (Version None)
Quarter: 2011Q1

REPORT INFORMATION
  Report Type: 
  Country: None (occurrence: None)
  Receive Date: 20110311
  Receipt Date: 20100907
  Transmission Date: 20110831
  Serious: Yes (Death)
  Sender: FDA-Public Use
  Company Number: AU-GENZYME-POMP-1000919

PATIENT
  Sex: Female
  Weight: 53 kg

DRUGS (1)
  1. MYOZYME [Suspect]
     Indication: GLYCOGEN STORAGE DISEASE TYPE II
     Dosage: UNK UNK, UNK
     Route: 042

REACTIONS (2)
  - ARRHYTHMIA [None]
  - CARDIAC MURMUR [None]
